FAERS Safety Report 15091789 (Version 1)
Quarter: 2018Q2

REPORT INFORMATION
  Report Type: Spontaneous
  Country: US (occurrence: US)
  Receive Date: 20180629
  Receipt Date: 20180629
  Transmission Date: 20180711
  Serious: No
  Sender: FDA-Public Use
  Company Number: US-AMGEN-USASP2014078913

PATIENT
  Age: 71 Year
  Sex: Female

DRUGS (3)
  1. PROLIA [Suspect]
     Active Substance: DENOSUMAB
     Indication: OSTEOPOROSIS POSTMENOPAUSAL
     Dosage: UNK
     Route: 065
     Dates: start: 201309
  2. CALCIUM [Concomitant]
     Active Substance: CALCIUM
     Dosage: 2000 MG, UNK
  3. VITAMIN D                          /00107901/ [Concomitant]
     Active Substance: ERGOCALCIFEROL
     Dosage: 4000 UNIT, UNK

REACTIONS (8)
  - Swelling [Unknown]
  - Erythema [Unknown]
  - Drug ineffective [Unknown]
  - Muscle spasms [Recovered/Resolved]
  - Arteriosclerosis [Unknown]
  - Limb injury [Unknown]
  - Impaired healing [Unknown]
  - Myalgia [Unknown]

NARRATIVE: CASE EVENT DATE: 201409
